FAERS Safety Report 9306110 (Version 1)
Quarter: 2013Q2

REPORT INFORMATION
  Report Type: Spontaneous
  Country: US (occurrence: US)
  Receive Date: 20130523
  Receipt Date: 20130523
  Transmission Date: 20140414
  Serious: No
  Sender: FDA-Public Use
  Company Number: US-BAUSCH-BL-2012-002137

PATIENT
  Age: 79 Year
  Sex: Female

DRUGS (3)
  1. IPRATROPIUM BROMIDE NASAL SOLUTION 0.06% [Suspect]
     Indication: RHINORRHOEA
     Dosage: AS NEEDED
     Route: 045
     Dates: start: 201211, end: 201211
  2. MELOXICAM [Concomitant]
  3. ALENDRONATE SODIUM [Concomitant]

REACTIONS (1)
  - Drug ineffective [Unknown]
